FAERS Safety Report 19887673 (Version 1)
Quarter: 2021Q3

REPORT INFORMATION
  Report Type: Spontaneous
  Country: US (occurrence: US)
  Receive Date: 20210928
  Receipt Date: 20210928
  Transmission Date: 20211014
  Serious: No
  Sender: FDA-Public Use
  Company Number: US-TEVA-2021-US-1957248

PATIENT
  Age: 43 Year
  Sex: Female
  Weight: 64.86 kg

DRUGS (3)
  1. TIAGABINE HYDROCHLORIDE. [Suspect]
     Active Substance: TIAGABINE HYDROCHLORIDE
     Indication: ANXIETY
     Route: 065
  2. XANAX [Concomitant]
     Active Substance: ALPRAZOLAM
  3. GABITRIL [Suspect]
     Active Substance: TIAGABINE HYDROCHLORIDE
     Indication: ANXIETY
     Route: 065

REACTIONS (2)
  - Off label use [Unknown]
  - Therapeutic product effect variable [Unknown]

NARRATIVE: CASE EVENT DATE: 2016
